FAERS Safety Report 7459609-3 (Version None)
Quarter: 2011Q2

REPORT INFORMATION
  Report Type: 
  Country: None (occurrence: None)
  Receive Date: 20110505
  Receipt Date: 20110421
  Transmission Date: 20111010
  Serious: Yes (Hospitalization)
  Sender: FDA-Public Use
  Company Number: PHHY2011DE23095

PATIENT
  Age: 53 Year
  Sex: Female
  Weight: 48 kg

DRUGS (3)
  1. ESTRADERM [Suspect]
     Dosage: 25 UG/24 H, TWICE WEEKLY
     Route: 062
     Dates: start: 20110201, end: 20110301
  2. ESTRADERM [Suspect]
     Indication: HORMONE THERAPY
     Dosage: 75 UG/24 H, TWICE WEEKLY
     Route: 062
     Dates: start: 20061201, end: 20101201
  3. ESTRADERM [Suspect]
     Dosage: 50UG/24 H, TWICE WEEKLY
     Route: 062
     Dates: start: 20101201, end: 20110301

REACTIONS (4)
  - HEAD DISCOMFORT [None]
  - HYPOAESTHESIA [None]
  - CHEST PAIN [None]
  - ERYTHEMA [None]
